FAERS Safety Report 9804880 (Version 1)
Quarter: 2014Q1

REPORT INFORMATION
  Report Type: Report from Study
  Country: US (occurrence: US)
  Receive Date: 20140108
  Receipt Date: 20140108
  Transmission Date: 20141002
  Serious: Yes (Other)
  Sender: FDA-Public Use
  Company Number: US-ROCHE-1327985

PATIENT
  Sex: 0

DRUGS (1)
  1. VEMURAFENIB [Suspect]
     Indication: HAIRY CELL LEUKAEMIA
     Dosage: CONTINUOUSLY IN CYCLES OF 4 WEEKS FOR 3 CYCLES
     Route: 065

REACTIONS (4)
  - Tumour lysis syndrome [Unknown]
  - Photosensitivity reaction [Unknown]
  - Febrile neutropenia [Unknown]
  - Arthralgia [Unknown]
